FAERS Safety Report 6526616-4 (Version None)
Quarter: 2010Q1

REPORT INFORMATION
  Report Type: 
  Country: None (occurrence: None)
  Receive Date: 20100105
  Receipt Date: 20091225
  Transmission Date: 20100710
  Serious: Yes (Other)
  Sender: FDA-Public Use
  Company Number: JP-ROCHE-674727

PATIENT
  Sex: Male
  Weight: 28 kg

DRUGS (6)
  1. TAMIFLU [Suspect]
     Indication: INFLUENZA
     Route: 048
     Dates: start: 20091206
  2. TAMIFLU [Suspect]
     Dosage: DRUG: TAMIFLU DRY SYRUP 3% (OSELTAMIVIR)
     Route: 048
     Dates: start: 20091206, end: 20091206
  3. CALONAL [Concomitant]
     Dosage: DRUG: CALONAL (ACETAMINOPHEN)
     Route: 048
     Dates: start: 20091206
  4. ASVERIN [Concomitant]
     Dosage: DRUG: ASVERIN (TIPEPIDINE HIBENZATE)
     Route: 048
     Dates: start: 20091206
  5. MUCODYNE [Concomitant]
     Dosage: FORM: ORAL FORMULATION (OTHERWISE NOT SPECIFIED)
     Route: 048
     Dates: start: 20091206
  6. PERIACTIN [Concomitant]
     Dosage: DRUG: PERIACTIN (CYPROHEPTADINE HYDROCHLORIDE)
     Route: 048
     Dates: start: 20091206

REACTIONS (3)
  - ABNORMAL BEHAVIOUR [None]
  - HALLUCINATION [None]
  - HALLUCINATION, VISUAL [None]
